FAERS Safety Report 21047497 (Version 3)
Quarter: 2022Q4

REPORT INFORMATION
  Report Type: Report from Study
  Country: JP (occurrence: JP)
  Receive Date: 20220706
  Receipt Date: 20221010
  Transmission Date: 20230113
  Serious: Yes (Death, Other)
  Sender: FDA-Public Use
  Company Number: JP-TAKEDA-2022TJP062181

PATIENT
  Age: 69 Year
  Sex: Male

DRUGS (7)
  1. LEUPLIN [Suspect]
     Active Substance: LEUPROLIDE ACETATE
     Indication: Bulbospinal muscular atrophy congenital
     Dosage: 11.25 MILLIGRAM, Q3MONTHS
     Route: 058
     Dates: start: 20171201, end: 20190301
  2. AMERGE [Concomitant]
     Active Substance: NARATRIPTAN HYDROCHLORIDE
     Indication: Bulbospinal muscular atrophy congenital
     Dosage: 2.5 MILLIGRAM
     Route: 065
     Dates: end: 20190427
  3. MINODRONIC ACID [Concomitant]
     Active Substance: MINODRONIC ACID
     Indication: Product used for unknown indication
     Dosage: 50 MILLIGRAM, MONTHLY
     Route: 065
     Dates: end: 20190427
  4. FELNABION [Concomitant]
     Indication: Back pain
     Dosage: 70 MILLIGRAM
     Route: 065
     Dates: end: 20190427
  5. CELECOXIB [Concomitant]
     Active Substance: CELECOXIB
     Indication: Bulbospinal muscular atrophy congenital
     Dosage: 200 MILLIGRAM
     Route: 065
     Dates: start: 20180727, end: 20190427
  6. CARBOCYSTEINE [Concomitant]
     Active Substance: CARBOCYSTEINE
     Indication: Bulbospinal muscular atrophy congenital
     Dosage: 1500 MILLIGRAM
     Route: 065
     Dates: end: 20180301
  7. CARBOCYSTEINE [Concomitant]
     Active Substance: CARBOCYSTEINE
     Indication: Bulbospinal muscular atrophy congenital
     Dosage: 45 MILLIGRAM
     Route: 065
     Dates: start: 20180302, end: 20181129

REACTIONS (1)
  - Pneumonia aspiration [Fatal]

NARRATIVE: CASE EVENT DATE: 20190420
